FAERS Safety Report 24437081 (Version 1)
Quarter: 2024Q4

REPORT INFORMATION
  Report Type: Spontaneous
  Country: CA (occurrence: CA)
  Receive Date: 20241015
  Receipt Date: 20241015
  Transmission Date: 20250115
  Serious: Yes (Death)
  Sender: PFIZER
  Company Number: CA-PFIZER INC-202400275375

PATIENT
  Age: 83 Year
  Sex: Male

DRUGS (8)
  1. VYNDAMAX [Suspect]
     Active Substance: TAFAMIDIS
     Indication: Cardiac amyloidosis
     Dosage: 61 MG, 1X/DAY
     Route: 048
     Dates: start: 2022
  2. EYE DROPS [TETRYZOLINE HYDROCHLORIDE] [Concomitant]
  3. VITALUX ADVANCED + OMEGA 3 [Concomitant]
  4. ROSUVASTATIN [Concomitant]
     Active Substance: ROSUVASTATIN
  5. ZOPICLONE [Concomitant]
     Active Substance: ZOPICLONE
  6. MIRTAZAPINE [Concomitant]
     Active Substance: MIRTAZAPINE
     Dosage: 30 MG
  7. DICLOFENAC [Concomitant]
     Active Substance: DICLOFENAC
  8. APIXABAN [Concomitant]
     Active Substance: APIXABAN
     Dosage: 5 MG

REACTIONS (1)
  - Death [Fatal]
